FAERS Safety Report 6264222-X (Version None)
Quarter: 2009Q3

REPORT INFORMATION
  Report Type: 
  Country: None (occurrence: None)
  Receive Date: 20090710
  Receipt Date: 20090630
  Transmission Date: 20100115
  Serious: Yes (Hospitalization)
  Sender: FDA-Public Use
  Company Number: DE-NICOBRDEVP-2009-05001

PATIENT
  Age: 56 Year
  Sex: Female

DRUGS (3)
  1. KENTERA (WATSON LABORATORIES) [Suspect]
     Indication: DRUG USE FOR UNKNOWN INDICATION
     Dosage: 1 PATCH 2/WEEK X 4 WEEKS
     Route: 062
     Dates: start: 20090601
  2. ANTIDEPRESSANTS [Suspect]
     Indication: DRUG USE FOR UNKNOWN INDICATION
  3. COPAXONE                           /01410902/ [Concomitant]
     Indication: MULTIPLE SCLEROSIS

REACTIONS (5)
  - APPLICATION SITE PHOTOSENSITIVITY REACTION [None]
  - DRUG INEFFECTIVE [None]
  - DRUG INTERACTION [None]
  - FATIGUE [None]
  - SEDATION [None]
